FAERS Safety Report 5451652-9 (Version None)
Quarter: 2007Q3

REPORT INFORMATION
  Report Type: 
  Country: None (occurrence: None)
  Receive Date: 20070913
  Receipt Date: 20070903
  Transmission Date: 20080115
  Serious: Yes (Other)
  Sender: FDA-Public Use
  Company Number: FR-PFIZER INC-2007074158

PATIENT
  Age: 33 Year
  Sex: Male

DRUGS (2)
  1. CHAMPIX [Suspect]
     Indication: SMOKING CESSATION THERAPY
     Dates: start: 20070801, end: 20070831
  2. DRUG, UNSPECIFIED [Concomitant]
     Indication: BLOOD CHOLESTEROL

REACTIONS (4)
  - CONDITION AGGRAVATED [None]
  - ECZEMA [None]
  - EYE PAIN [None]
  - HEADACHE [None]
